FAERS Safety Report 5487810-7 (Version None)
Quarter: 2007Q3

REPORT INFORMATION
  Report Type: 
  Country: None (occurrence: None)
  Receive Date: 20070925
  Receipt Date: 20070523
  Transmission Date: 20080115
  Serious: No
  Sender: FDA-Public Use
  Company Number: 2007US001186

PATIENT
  Age: 11 Year
  Sex: Female

DRUGS (1)
  1. VESICARE [Suspect]
     Indication: ENURESIS
     Dosage: 5 MG, UID/QD, ORAL
     Route: 048
     Dates: start: 20070501

REACTIONS (1)
  - DRUG EFFECT DECREASED [None]
